FAERS Safety Report 7342821-1 (Version None)
Quarter: 2011Q1

REPORT INFORMATION
  Report Type: 
  Country: None (occurrence: None)
  Receive Date: 20110301
  Receipt Date: 20110216
  Transmission Date: 20110831
  Serious: Yes (Other)
  Sender: FDA-Public Use
  Company Number: 1000018934

PATIENT
  Age: 71 Year
  Sex: Male

DRUGS (7)
  1. VECURONIUM BROMIDE (VECURONIUM BROMIDE) (VECURONIUM BROMIDE) [Concomitant]
  2. SEVOFLURANE (SEVOFLURANE) (SEVOFLURANE) [Concomitant]
  3. MILNACIPRAN (MILNACIPRAN HYDROCHLORIDE) (TABLETS) [Suspect]
     Indication: DEPRESSION
     Dosage: ORAL
     Route: 048
  4. NITROUS OXIDE (NITROUS OXIDE) (NITROUS OXIDE) [Concomitant]
  5. PROPOFOL [Concomitant]
  6. OXYGEN (OXYGEN) (OXYGEN) [Concomitant]
  7. QUETIAPINE FUMARATE (QUETIAPINE FUMARATE) (QUETIAPINE FUMARATE) [Concomitant]

REACTIONS (2)
  - ANAESTHETIC COMPLICATION [None]
  - PROCEDURAL HYPOTENSION [None]
